FAERS Safety Report 8416410-1 (Version None)
Quarter: 2012Q2

REPORT INFORMATION
  Report Type: 
  Country: None (occurrence: None)
  Receive Date: 20120606
  Receipt Date: 20120525
  Transmission Date: 20120825
  Serious: Yes (Hospitalization)
  Sender: FDA-Public Use
  Company Number: ES-ELI_LILLY_AND_COMPANY-ES201205009562

PATIENT
  Sex: Female

DRUGS (7)
  1. SOMAZINA [Concomitant]
     Indication: CEREBROVASCULAR DISORDER
     Dosage: UNK, 4 MONTHS A YEAR
     Route: 048
  2. FORTEO [Suspect]
     Indication: OSTEOPOROSIS
     Dosage: 20 UG, QD
     Route: 058
     Dates: start: 20111119, end: 20120523
  3. NOOTROPIL [Concomitant]
     Indication: CEREBROVASCULAR DISORDER
     Dosage: UNK, 4 MONTHS A YEAR
     Route: 048
  4. SURMENALIT [Concomitant]
     Indication: CEREBROVASCULAR DISORDER
     Dosage: UNK, 4 MONTHS A YEAR
     Route: 048
  5. ACTONEL [Concomitant]
     Indication: OSTEOPOROSIS
     Dosage: UNK, WEEKLY (1/W)
     Route: 048
  6. ACETAMINOPHEN [Concomitant]
     Dosage: UNK, PRN
     Route: 048
  7. CALCIUM CARBONATE [Concomitant]
     Indication: OSTEOPOROSIS
     Dosage: UNK, BID
     Route: 048

REACTIONS (1)
  - INGUINAL HERNIA STRANGULATED [None]
